FAERS Safety Report 7749058 (Version 5)
Quarter: 2013Q1

REPORT INFORMATION
  Report Type: Report from Study
  Country: JP (occurrence: JP)
  Receive Date: 20110105
  Receipt Date: 20130123
  Transmission Date: 20140127
  Serious: Yes (Death, Life-Threatening, Hospitalization, Other)
  Sender: FDA-Public Use
  Company Number: PHHY2010JP73864

PATIENT
  Age: 31 Year
  Sex: Male

DRUGS (8)
  1. AFINITOR [Suspect]
     Indication: METASTATIC RENAL CELL CARCINOMA
     Dosage: 10 MG, UNK
     Route: 048
     Dates: start: 20100805, end: 20101002
  2. SUNITINIB MALATE [Suspect]
     Indication: METASTATIC RENAL CELL CARCINOMA
     Dosage: 50 MG, DAILY
     Route: 048
     Dates: start: 20090319, end: 20100721
  3. GABAPENTIN [Concomitant]
     Indication: METASTATIC RENAL CELL CARCINOMA
     Dosage: 400 MG, UNK
     Route: 048
     Dates: end: 20100905
  4. MYSLEE [Concomitant]
     Indication: METASTATIC RENAL CELL CARCINOMA
     Dosage: 10 MEQ/KG, UNK
     Route: 048
     Dates: end: 20100905
  5. LASIX [Concomitant]
     Indication: METASTATIC RENAL CELL CARCINOMA
     Dosage: 10 MG, UNK
     Route: 048
     Dates: end: 20100905
  6. TAKEPRON [Concomitant]
     Indication: METASTATIC RENAL CELL CARCINOMA
     Dosage: 30 MG, UNK
     Route: 048
     Dates: end: 20100905
  7. DECADRON [Concomitant]
     Indication: METASTATIC RENAL CELL CARCINOMA
     Dosage: 4 MG, UNK
     Route: 048
     Dates: end: 20100905
  8. THYRADIN S [Concomitant]
     Dosage: 50 UG, UNK
     Route: 048

REACTIONS (11)
  - Urogenital atrophy [Fatal]
  - Pancreatic atrophy [Fatal]
  - Leukoencephalopathy [Fatal]
  - Thyroid atrophy [Unknown]
  - Adrenal atrophy [Unknown]
  - Haemoglobin decreased [Unknown]
  - Neoplasm progression [Fatal]
  - Malignant neoplasm progression [Fatal]
  - Aspartate aminotransferase increased [Not Recovered/Not Resolved]
  - Alanine aminotransferase increased [Not Recovered/Not Resolved]
  - Hyperglycaemia [Not Recovered/Not Resolved]
